FAERS Safety Report 10071980 (Version 1)
Quarter: 2014Q2

REPORT INFORMATION
  Report Type: Spontaneous
  Country: US (occurrence: US)
  Receive Date: 20140411
  Receipt Date: 20140411
  Transmission Date: 20141212
  Serious: Yes (Hospitalization)
  Sender: FDA-Public Use
  Company Number: US-BRISTOL-MYERS SQUIBB COMPANY-20614814

PATIENT
  Age: 84 Year
  Sex: Male
  Weight: 69.39 kg

DRUGS (12)
  1. COUMADIN [Suspect]
  2. WARFARIN SODIUM [Suspect]
  3. LISINOPRIL [Concomitant]
  4. POTASSIUM CHLORIDE [Concomitant]
  5. ATORVASTATIN [Concomitant]
  6. FUROSEMIDE [Concomitant]
  7. BABY ASPIRIN [Concomitant]
  8. FAMOTIDINE [Concomitant]
     Dosage: 1 DF=40 NO UNITS
  9. AMLODIPINE BESYLATE [Concomitant]
  10. DOXEPIN [Concomitant]
  11. GLUCOSAMINE [Concomitant]
  12. TIMOLOL [Concomitant]
     Dosage: TIMOLOL 0.5% ONE DROP IN LEFT EYE DAILY.

REACTIONS (3)
  - Cardiac flutter [Unknown]
  - Aortic valve stenosis [Unknown]
  - Heart rate decreased [Unknown]
